FAERS Safety Report 14764323 (Version 6)
Quarter: 2023Q1

REPORT INFORMATION
  Report Type: Spontaneous
  Country: US (occurrence: None)
  Receive Date: 20180416
  Receipt Date: 20230203
  Transmission Date: 20230418
  Serious: Yes (Hospitalization, Other)
  Sender: FDA-Public Use
  Company Number: 2018SE47239

PATIENT
  Age: 28334 Day
  Sex: Female
  Weight: 68.5 kg

DRUGS (65)
  1. NEXIUM [Suspect]
     Active Substance: ESOMEPRAZOLE MAGNESIUM
     Indication: Gastrooesophageal reflux disease
     Route: 048
     Dates: start: 198909, end: 201712
  2. NEXIUM [Suspect]
     Active Substance: ESOMEPRAZOLE MAGNESIUM
     Indication: Gastrooesophageal reflux disease
     Route: 048
     Dates: start: 201410, end: 201410
  3. NEXIUM [Suspect]
     Active Substance: ESOMEPRAZOLE MAGNESIUM
     Indication: Gastrooesophageal reflux disease
     Route: 048
     Dates: start: 20150917
  4. NEXIUM [Suspect]
     Active Substance: ESOMEPRAZOLE MAGNESIUM
     Indication: Gastrooesophageal reflux disease
     Route: 048
     Dates: start: 20010628, end: 20170727
  5. NEXIUM [Suspect]
     Active Substance: ESOMEPRAZOLE MAGNESIUM
     Indication: Gastrooesophageal reflux disease
     Dosage: GENERIC
     Route: 065
     Dates: start: 20160111, end: 20170109
  6. NEXIUM 24HR [Suspect]
     Active Substance: ESOMEPRAZOLE MAGNESIUM
     Route: 048
     Dates: start: 198909, end: 201712
  7. NEXIUM 24HR [Suspect]
     Active Substance: ESOMEPRAZOLE MAGNESIUM
     Route: 048
  8. PRILOSEC [Suspect]
     Active Substance: OMEPRAZOLE MAGNESIUM
     Indication: Gastrooesophageal reflux disease
     Route: 048
     Dates: start: 198909, end: 201712
  9. PRILOSEC [Suspect]
     Active Substance: OMEPRAZOLE MAGNESIUM
     Indication: Gastrooesophageal reflux disease
     Route: 048
  10. PRILOSEC [Suspect]
     Active Substance: OMEPRAZOLE MAGNESIUM
     Indication: Gastrooesophageal reflux disease
     Route: 048
     Dates: start: 20040810, end: 20120707
  11. PRILOSEC [Suspect]
     Active Substance: OMEPRAZOLE MAGNESIUM
     Indication: Gastrooesophageal reflux disease
     Dosage: GENERIC
     Route: 065
     Dates: start: 20100319, end: 20170112
  12. PRILOSEC OTC [Suspect]
     Active Substance: OMEPRAZOLE MAGNESIUM
     Indication: Gastrooesophageal reflux disease
     Route: 048
     Dates: start: 198909, end: 201712
  13. PRILOSEC OTC [Suspect]
     Active Substance: OMEPRAZOLE MAGNESIUM
     Indication: Gastrooesophageal reflux disease
     Route: 048
     Dates: start: 201410, end: 201410
  14. PRILOSEC OTC [Suspect]
     Active Substance: OMEPRAZOLE MAGNESIUM
     Indication: Gastrooesophageal reflux disease
     Route: 048
     Dates: start: 20040719, end: 20080508
  15. PRILOSEC OTC [Suspect]
     Active Substance: OMEPRAZOLE MAGNESIUM
     Indication: Gastrooesophageal reflux disease
     Route: 048
  16. PRILOSEC OTC [Suspect]
     Active Substance: OMEPRAZOLE MAGNESIUM
     Indication: Gastrooesophageal reflux disease
     Route: 048
     Dates: start: 20040719, end: 20100706
  17. PRILOSEC OTC [Suspect]
     Active Substance: OMEPRAZOLE MAGNESIUM
     Indication: Gastrooesophageal reflux disease
     Route: 048
     Dates: start: 20100302
  18. DEXILANT [Suspect]
     Active Substance: DEXLANSOPRAZOLE
     Route: 065
     Dates: start: 198909, end: 201712
  19. PREVACID [Suspect]
     Active Substance: LANSOPRAZOLE
     Route: 065
     Dates: start: 198909, end: 201712
  20. PREVACID [Suspect]
     Active Substance: LANSOPRAZOLE
     Route: 065
  21. PREVACID 24 HR [Suspect]
     Active Substance: LANSOPRAZOLE
     Route: 065
     Dates: start: 198909, end: 201712
  22. PREVACID 24 HR [Suspect]
     Active Substance: LANSOPRAZOLE
     Route: 065
  23. PROTONIX [Suspect]
     Active Substance: PANTOPRAZOLE SODIUM
     Indication: Gastrooesophageal reflux disease
     Route: 065
     Dates: start: 198909, end: 201712
  24. PROTONIX [Suspect]
     Active Substance: PANTOPRAZOLE SODIUM
     Indication: Gastrooesophageal reflux disease
     Route: 065
     Dates: start: 201410, end: 201410
  25. PROTONIX [Suspect]
     Active Substance: PANTOPRAZOLE SODIUM
     Indication: Gastrooesophageal reflux disease
     Route: 065
     Dates: start: 20080504, end: 20180406
  26. PROTONIX [Suspect]
     Active Substance: PANTOPRAZOLE SODIUM
     Indication: Gastrooesophageal reflux disease
     Dosage: GENERIC
     Route: 065
     Dates: start: 20141003, end: 20180417
  27. PROTONIX [Suspect]
     Active Substance: PANTOPRAZOLE SODIUM
     Indication: Gastrooesophageal reflux disease
     Dosage: GENERIC- PANTOPRAZOLE IV
     Route: 065
     Dates: start: 20141016, end: 20141017
  28. PROTONIX [Suspect]
     Active Substance: PANTOPRAZOLE SODIUM
     Indication: Gastrooesophageal reflux disease
     Route: 065
     Dates: start: 20120703, end: 20120704
  29. PROTONIX [Suspect]
     Active Substance: PANTOPRAZOLE SODIUM
     Indication: Gastrooesophageal reflux disease
     Route: 065
     Dates: start: 20170506, end: 20170516
  30. PROTONIX [Suspect]
     Active Substance: PANTOPRAZOLE SODIUM
     Indication: Gastrooesophageal reflux disease
     Route: 065
     Dates: start: 20170531, end: 20170601
  31. ALLOPURINOL [Concomitant]
     Active Substance: ALLOPURINOL
  32. ALBUTEROL SULFATE [Concomitant]
     Active Substance: ALBUTEROL SULFATE
  33. LANTUS [Concomitant]
     Active Substance: INSULIN GLARGINE
  34. LASIX [Concomitant]
     Active Substance: FUROSEMIDE
  35. LEXAPRO [Concomitant]
     Active Substance: ESCITALOPRAM OXALATE
  36. LISINOPRIL [Concomitant]
     Active Substance: LISINOPRIL
  37. RESTORIL [Concomitant]
     Active Substance: TEMAZEPAM
  38. ASPIRIN [Concomitant]
     Active Substance: ASPIRIN
     Indication: Pain
     Dates: start: 201211
  39. FORADIL [Concomitant]
     Active Substance: FORMOTEROL FUMARATE
  40. PLAVIX [Concomitant]
     Active Substance: CLOPIDOGREL BISULFATE
  41. PULMICORT TURBUHALER [Concomitant]
     Active Substance: BUDESONIDE
  42. NOVOLOG [Concomitant]
     Active Substance: INSULIN ASPART
  43. ZOLPIDEM TARTRATE [Concomitant]
     Active Substance: ZOLPIDEM TARTRATE
  44. TAMOXIFEN CITRATE [Concomitant]
     Active Substance: TAMOXIFEN CITRATE
  45. TYLENOL [Concomitant]
     Active Substance: ACETAMINOPHEN
  46. ZOCOR/ SIMVASTATIN [Concomitant]
     Indication: Blood cholesterol
     Dates: start: 200910, end: 201707
  47. XYZAL [Concomitant]
     Active Substance: LEVOCETIRIZINE DIHYDROCHLORIDE
  48. METHYLPREDNISOLONE [Concomitant]
     Active Substance: METHYLPREDNISOLONE
     Indication: Inflammation
     Dates: start: 201707, end: 201801
  49. CARVEDILOL/ COREG [Concomitant]
     Indication: Blood pressure abnormal
     Dates: start: 201308, end: 201702
  50. LORATADINE [Concomitant]
     Active Substance: LORATADINE
     Indication: Nasopharyngitis
     Dates: start: 201305, end: 201606
  51. BUMETANIDE [Concomitant]
     Active Substance: BUMETANIDE
     Indication: Diuretic therapy
     Dates: start: 201209, end: 201611
  52. ACETAZOLAMIDE [Concomitant]
     Active Substance: ACETAZOLAMIDE
     Indication: Hypertension
     Dates: start: 200910, end: 201803
  53. AXID [Concomitant]
     Active Substance: NIZATIDINE
     Dates: start: 200208
  54. THEOPHYLLINE [Concomitant]
     Active Substance: THEOPHYLLINE
     Dates: start: 201106, end: 201703
  55. SIMVASTATIN [Concomitant]
     Active Substance: SIMVASTATIN
     Dates: start: 20091005
  56. AMITRIPTYLINE HYDROCHLORIDE [Concomitant]
     Active Substance: AMITRIPTYLINE HYDROCHLORIDE
     Dates: start: 20100201
  57. TEMAZEPAM [Concomitant]
     Active Substance: TEMAZEPAM
     Dates: start: 20100201
  58. CEFDINIR [Concomitant]
     Active Substance: CEFDINIR
     Dates: start: 20110311
  59. ARANESP [Concomitant]
     Active Substance: DARBEPOETIN ALFA
     Dates: start: 20110311
  60. FEMARA [Concomitant]
     Active Substance: LETROZOLE
     Dates: start: 20110311
  61. SALMETEROL [Concomitant]
     Active Substance: SALMETEROL
  62. CORDARONE [Concomitant]
     Active Substance: AMIODARONE HYDROCHLORIDE
  63. ELAVIL [Concomitant]
     Active Substance: AMITRIPTYLINE HYDROCHLORIDE
  64. MARCAINE [Concomitant]
     Active Substance: BUPIVACAINE HYDROCHLORIDE
  65. THEO-DUR [Concomitant]
     Active Substance: THEOPHYLLINE ANHYDROUS

REACTIONS (5)
  - Chronic kidney disease [Not Recovered/Not Resolved]
  - Renal failure [Unknown]
  - Renal injury [Unknown]
  - Acute kidney injury [Not Recovered/Not Resolved]
  - Nephrogenic anaemia [Unknown]

NARRATIVE: CASE EVENT DATE: 20180413
